FAERS Safety Report 7343001-6 (Version None)
Quarter: 2011Q1

REPORT INFORMATION
  Report Type: 
  Country: None (occurrence: None)
  Receive Date: 20110310
  Receipt Date: 20110228
  Transmission Date: 20110831
  Serious: Yes (Hospitalization)
  Sender: FDA-Public Use
  Company Number: DE-JNJFOC-20110208308

PATIENT
  Age: 31 Year
  Sex: Male

DRUGS (7)
  1. HALDOL [Suspect]
     Route: 048
     Dates: end: 20100801
  2. TAVOR [Concomitant]
     Route: 048
     Dates: end: 20100801
  3. FLUANXOL DEPOT [Suspect]
     Indication: PRODUCT USED FOR UNKNOWN INDICATION
     Route: 048
     Dates: start: 20100501
  4. LEVOMEPROMAZIN [Suspect]
     Indication: PRODUCT USED FOR UNKNOWN INDICATION
     Route: 048
     Dates: start: 20100501, end: 20100801
  5. HALDOL [Suspect]
     Indication: PRODUCT USED FOR UNKNOWN INDICATION
     Route: 048
     Dates: end: 20100801
  6. FLUPENTIXOL [Suspect]
     Indication: PRODUCT USED FOR UNKNOWN INDICATION
     Route: 048
     Dates: start: 20100729, end: 20100801
  7. SOLIAN [Suspect]
     Indication: PRODUCT USED FOR UNKNOWN INDICATION
     Route: 048
     Dates: start: 20100501, end: 20100801

REACTIONS (2)
  - ACUTE MYOCARDIAL INFARCTION [None]
  - CONVULSION [None]
